FAERS Safety Report 20670095 (Version 1)
Quarter: 2022Q2

REPORT INFORMATION
  Report Type: Spontaneous
  Country: US (occurrence: None)
  Receive Date: 20220401
  Receipt Date: 20220401
  Transmission Date: 20220720
  Serious: No
  Sender: FDA-Public Use
  Company Number: None

PATIENT
  Age: 38 Year
  Sex: Female

DRUGS (1)
  1. DIMETHYL FUMARATE [Suspect]
     Active Substance: DIMETHYL FUMARATE
     Dosage: 240MG BID ORAL?
     Route: 048
     Dates: start: 202012

REACTIONS (4)
  - Drug ineffective [None]
  - Urinary retention [None]
  - Abdominal pain [None]
  - Bladder disorder [None]

NARRATIVE: CASE EVENT DATE: 20220401
